FAERS Safety Report 16957189 (Version 1)
Quarter: 2019Q4

REPORT INFORMATION
  Report Type: Spontaneous
  Country: SK (occurrence: SK)
  Receive Date: 20191024
  Receipt Date: 20191024
  Transmission Date: 20200122
  Serious: Yes (Other)
  Sender: FDA-Public Use
  Company Number: SK-TEVA-2019-SK-1126011

PATIENT
  Age: 54 Year
  Sex: Female

DRUGS (2)
  1. VERAPAMIL [Concomitant]
     Active Substance: VERAPAMIL HYDROCHLORIDE
     Route: 065
  2. MONTELUKAST [Suspect]
     Active Substance: MONTELUKAST SODIUM
     Route: 065

REACTIONS (3)
  - Chest discomfort [Recovered/Resolved]
  - Adverse event [Recovered/Resolved]
  - Angina pectoris [Recovered/Resolved]

NARRATIVE: CASE EVENT DATE: 201612
